FAERS Safety Report 23195975 (Version 1)
Quarter: 2023Q4

REPORT INFORMATION
  Report Type: Spontaneous
  Country: AT (occurrence: AT)
  Receive Date: 20231117
  Receipt Date: 20231117
  Transmission Date: 20240110
  Serious: Yes (Other)
  Sender: FDA-Public Use
  Company Number: None

PATIENT
  Age: 46 Year
  Sex: Female
  Weight: 60 kg

DRUGS (5)
  1. SPRAVATO [Suspect]
     Active Substance: ESKETAMINE
     Indication: Depression
     Dates: start: 202302
  2. SPRAVATO [Suspect]
     Active Substance: ESKETAMINE
     Dosage: 1 DOSE TOTAL
     Dates: start: 20230912
  3. ALPRAZOLAM [Concomitant]
     Active Substance: ALPRAZOLAM
  4. WELLBUTRIN [Concomitant]
     Active Substance: BUPROPION HYDROCHLORIDE
  5. SEROQUEL [Concomitant]
     Active Substance: QUETIAPINE FUMARATE

REACTIONS (2)
  - Transient psychosis [Recovered/Resolved]
  - Panic reaction [Recovered/Resolved]

NARRATIVE: CASE EVENT DATE: 20230912
